FAERS Safety Report 8124762-5 (Version None)
Quarter: 2012Q1

REPORT INFORMATION
  Report Type: 
  Country: None (occurrence: None)
  Receive Date: 20120209
  Receipt Date: 20120206
  Transmission Date: 20120608
  Serious: Yes (Other)
  Sender: FDA-Public Use
  Company Number: US-PFIZER INC-2012032983

PATIENT
  Sex: Male
  Weight: 99.773 kg

DRUGS (7)
  1. NAMENDA [Concomitant]
     Indication: DEMENTIA
     Dosage: UNK
  2. CELEXA [Suspect]
     Dosage: UNK
  3. DIOVAN [Concomitant]
     Indication: BLOOD PRESSURE ABNORMAL
     Dosage: UNK
  4. PRISTIQ [Suspect]
     Indication: DEPRESSION
     Dosage: 50 MG, DAILY
     Dates: start: 20111101
  5. VICODIN [Concomitant]
     Indication: BLOOD CHOLESTEROL ABNORMAL
     Dosage: UNK
  6. INSULIN [Concomitant]
     Indication: DIABETES MELLITUS
     Dosage: UNK
  7. PLAVIX [Concomitant]
     Indication: CARDIAC DISORDER
     Dosage: UNK

REACTIONS (5)
  - DRUG INEFFECTIVE [None]
  - DEPRESSION [None]
  - GLYCOSYLATED HAEMOGLOBIN INCREASED [None]
  - MALE SEXUAL DYSFUNCTION [None]
  - CIRCUMSTANCE OR INFORMATION CAPABLE OF LEADING TO MEDICATION ERROR [None]
